FAERS Safety Report 8351978-5 (Version None)
Quarter: 2012Q2

REPORT INFORMATION
  Report Type: 
  Country: None (occurrence: None)
  Receive Date: 20120510
  Receipt Date: 20120510
  Transmission Date: 20120825
  Serious: Yes (Life-Threatening, Hospitalization)
  Sender: FDA-Public Use
  Company Number: None

PATIENT
  Age: 24 Year
  Sex: Male
  Weight: 68.0396 kg

DRUGS (1)
  1. ROCEPHIN [Suspect]
     Indication: INFECTION
     Dosage: 1 GM ONE TIME IV DRIP
     Route: 041
     Dates: start: 20120301, end: 20120301

REACTIONS (8)
  - BURNING SENSATION [None]
  - FEELING HOT [None]
  - UNRESPONSIVE TO STIMULI [None]
  - TACHYCARDIA [None]
  - AGITATION [None]
  - INFUSION RELATED REACTION [None]
  - HYPOTENSION [None]
  - PRURITUS [None]
